FAERS Safety Report 7494025-X (Version None)
Quarter: 2011Q2

REPORT INFORMATION
  Report Type: 
  Country: None (occurrence: None)
  Receive Date: 20110520
  Receipt Date: 20110518
  Transmission Date: 20111010
  Serious: Yes (Hospitalization)
  Sender: FDA-Public Use
  Company Number: US-PFIZER INC-2011086537

PATIENT
  Sex: Female

DRUGS (2)
  1. GEODON [Suspect]
     Dosage: UNK
  2. LAMICTAL [Suspect]
     Dosage: UNK

REACTIONS (2)
  - TACHYCARDIA [None]
  - RASH [None]
